FAERS Safety Report 5718799-0 (Version None)
Quarter: 2008Q2

REPORT INFORMATION
  Report Type: 
  Country: None (occurrence: None)
  Receive Date: 20080425
  Receipt Date: 20080423
  Transmission Date: 20081010
  Serious: Yes (Hospitalization)
  Sender: FDA-Public Use
  Company Number: DE-BOEHRINGER INGELHEIM GMBH, GERMANY-2008-DE-02445DE

PATIENT
  Sex: Male
  Weight: 8 kg

DRUGS (3)
  1. SIFROL 0,18 MG [Suspect]
     Route: 048
  2. DOPADURA C [Suspect]
     Route: 048
  3. CARBIDOPA AND LEVODOPA [Suspect]
     Route: 048

REACTIONS (1)
  - MEDICATION ERROR [None]
